FAERS Safety Report 7182461-0 (Version None)
Quarter: 2010Q4

REPORT INFORMATION
  Report Type: 
  Country: None (occurrence: None)
  Receive Date: 20101221
  Receipt Date: 20100513
  Transmission Date: 20110411
  Serious: Yes (Other)
  Sender: FDA-Public Use
  Company Number: US-AMGEN-KDL409912

PATIENT

DRUGS (5)
  1. ENBREL [Suspect]
     Indication: PRODUCT USED FOR UNKNOWN INDICATION
     Dosage: 50 MG, QWK
     Route: 058
  2. DEXTROPROPOXYPHENE NAPSILATE W/ ACETAMINOPHEN [Concomitant]
     Dosage: UNK UNK, UNK
  3. RIZATRIPTAN BENZOATE [Concomitant]
     Dosage: 5 MG, UNK
  4. TRAMADOL HYDROCHLORIDE [Concomitant]
     Dosage: 50 MG, UNK
  5. ERGOCALCIFEROL [Concomitant]
     Dosage: 50000 IU, UNK

REACTIONS (2)
  - EYE PAIN [None]
  - HERPES ZOSTER [None]
